FAERS Safety Report 8382228-1 (Version None)
Quarter: 2012Q2

REPORT INFORMATION
  Report Type: 
  Country: None (occurrence: None)
  Receive Date: 20120524
  Receipt Date: 20120521
  Transmission Date: 20120825
  Serious: No
  Sender: FDA-Public Use
  Company Number: US-PFIZER INC-2012123775

PATIENT
  Sex: Female

DRUGS (9)
  1. CALCIUM [Concomitant]
     Dosage: UNK
  2. SUTENT [Suspect]
     Indication: RENAL CANCER
     Dosage: 37.5 MG, DAILY
  3. MELOXICAM [Concomitant]
     Dosage: UNK
  4. RANITIDINE [Concomitant]
     Dosage: UNK
  5. ZETIA [Concomitant]
     Dosage: UNK
  6. LORATADINE [Concomitant]
     Dosage: UNK
  7. METFORMIN [Concomitant]
     Dosage: UNK
  8. BENAZEPRIL [Concomitant]
     Dosage: UNK
  9. NEXUM [Concomitant]
     Dosage: UNK

REACTIONS (1)
  - LIMB DISCOMFORT [None]
